FAERS Safety Report 10351803 (Version 5)
Quarter: 2014Q3

REPORT INFORMATION
  Report Type: Spontaneous
  Country: IT (occurrence: IT)
  Receive Date: 20140730
  Receipt Date: 20140909
  Transmission Date: 20150326
  Serious: Yes (Other)
  Sender: FDA-Public Use
  Company Number: IT-ASTRAZENECA-2014SE54710

PATIENT
  Age: 9457 Day
  Sex: Female

DRUGS (10)
  1. NERVAXON [Suspect]
     Active Substance: ASCORBIC ACID\VITAMIN B COMPLEX
     Indication: DRUG ABUSE
     Dosage: 600-900 MG
     Route: 048
  2. PLASIL [Suspect]
     Active Substance: METOCLOPRAMIDE HYDROCHLORIDE
     Indication: DRUG ABUSE
     Route: 048
  3. NERVAXON [Suspect]
     Active Substance: ASCORBIC ACID\VITAMIN B COMPLEX
     Indication: DRUG ABUSE
     Route: 048
     Dates: start: 20131214, end: 20131214
  4. LUCEN [Suspect]
     Active Substance: ESOMEPRAZOLE
     Indication: DRUG ABUSE
     Route: 048
     Dates: start: 20131214, end: 20131214
  5. PARACETAMOL [Suspect]
     Active Substance: ACETAMINOPHEN
     Indication: DRUG ABUSE
     Route: 048
     Dates: start: 20131214, end: 20131214
  6. NERVAXON [Suspect]
     Active Substance: ASCORBIC ACID\VITAMIN B COMPLEX
     Indication: DRUG ABUSE
     Route: 048
  7. AULIN [Suspect]
     Active Substance: NIMESULIDE
     Indication: DRUG ABUSE
     Route: 048
     Dates: start: 20131214, end: 20131214
  8. PLASIL [Suspect]
     Active Substance: METOCLOPRAMIDE HYDROCHLORIDE
     Indication: DRUG ABUSE
     Route: 048
     Dates: start: 20131214, end: 20131214
  9. XANAX [Suspect]
     Active Substance: ALPRAZOLAM
     Indication: DRUG ABUSE
     Route: 048
     Dates: start: 20131214, end: 20131214
  10. PLASIL [Suspect]
     Active Substance: METOCLOPRAMIDE HYDROCHLORIDE
     Indication: DRUG ABUSE
     Route: 048

REACTIONS (2)
  - Depressed level of consciousness [Recovering/Resolving]
  - Drug abuse [Recovering/Resolving]

NARRATIVE: CASE EVENT DATE: 20131214
